FAERS Safety Report 16653442 (Version 1)
Quarter: 2019Q3

REPORT INFORMATION
  Report Type: Spontaneous
  Country: PL (occurrence: PL)
  Receive Date: 20190731
  Receipt Date: 20190731
  Transmission Date: 20191004
  Serious: Yes (Life-Threatening)
  Sender: FDA-Public Use
  Company Number: PL-TEVA-2019-PL-1085802

PATIENT
  Age: 68 Year
  Sex: Female
  Weight: 40 kg

DRUGS (7)
  1. PRESTARIUM [Concomitant]
     Active Substance: PERINDOPRIL
  2. DOXEPIN [Suspect]
     Active Substance: DOXEPIN
     Dosage: 20 MILLIGRAM
     Route: 048
  3. DEBRETIN [Concomitant]
  4. MIRZATEN [Suspect]
     Active Substance: MIRTAZAPINE
     Dosage: 15 MILLIGRAM
     Route: 048
     Dates: start: 20151127, end: 20151129
  5. CONCOR COR [Concomitant]
     Active Substance: BISOPROLOL FUMARATE
  6. ASAMAX [Concomitant]
     Active Substance: MESALAMINE
  7. PRIMACOR [Concomitant]
     Active Substance: MILRINONE LACTATE

REACTIONS (1)
  - Inappropriate antidiuretic hormone secretion [Unknown]
